FAERS Safety Report 5323453-3 (Version None)
Quarter: 2007Q2

REPORT INFORMATION
  Report Type: 
  Country: None (occurrence: None)
  Receive Date: 20070514
  Receipt Date: 20070504
  Transmission Date: 20071010
  Serious: Yes (Hospitalization, Other)
  Sender: FDA-Public Use
  Company Number: PHNR2006AU01496

PATIENT
  Age: 69 Year
  Sex: Female

DRUGS (2)
  1. GLEEVEC [Suspect]
     Indication: METASTASES TO LIVER
     Dosage: 400 MG, QD
     Route: 048
     Dates: start: 20050901
  2. VITAMINS [Concomitant]

REACTIONS (10)
  - ANAEMIA [None]
  - BIOPSY BONE MARROW ABNORMAL [None]
  - BLOOD IMMUNOGLOBULIN M INCREASED [None]
  - DIARRHOEA [None]
  - PROTEIN TOTAL INCREASED [None]
  - REFLUX OESOPHAGITIS [None]
  - ROULEAUX FORMATION [None]
  - TUMOUR NECROSIS [None]
  - WALDENSTROM'S MACROGLOBULINAEMIA [None]
  - WEIGHT DECREASED [None]
